FAERS Safety Report 8934605 (Version 3)
Quarter: 2013Q1

REPORT INFORMATION
  Report Type: Spontaneous
  Country: BE (occurrence: BE)
  Receive Date: 20121129
  Receipt Date: 20130102
  Transmission Date: 20140127
  Serious: Yes (Other)
  Sender: FDA-Public Use
  Company Number: BE-JNJFOC-20121112581

PATIENT
  Sex: Female

DRUGS (7)
  1. XARELTO [Suspect]
     Indication: CEREBROVASCULAR ACCIDENT PROPHYLAXIS
     Route: 048
     Dates: start: 20121003
  2. XARELTO [Suspect]
     Indication: ATRIAL FIBRILLATION
     Route: 048
     Dates: start: 20121003
  3. PROTON PUMP INHIBITORS [Concomitant]
     Route: 065
  4. ANTIDIURETIC HORMONE [Concomitant]
     Route: 065
  5. ALDACTAZINE [Concomitant]
     Indication: HYPERTENSION
     Route: 065
  6. BISOPROLOL [Concomitant]
     Indication: HYPERTENSION
     Route: 065
  7. OMEPRAZOLE [Concomitant]
     Indication: OESOPHAGITIS
     Route: 065

REACTIONS (1)
  - Renal impairment [Recovered/Resolved]
